FAERS Safety Report 12282739 (Version 2)
Quarter: 2016Q2

REPORT INFORMATION
  Report Type: Spontaneous
  Country: AR (occurrence: AR)
  Receive Date: 20160419
  Receipt Date: 20160422
  Transmission Date: 20160815
  Serious: Yes (Other)
  Sender: FDA-Public Use
  Company Number: AR-PFIZER INC-2016202346

PATIENT
  Age: 86 Year
  Sex: Female

DRUGS (4)
  1. PLENACOR /00422901/ [Suspect]
     Active Substance: ATENOLOL
     Indication: HYPERTENSION
     Dosage: 25 MG, DAILY
     Dates: start: 20080401
  2. T4 [Concomitant]
     Active Substance: LEVOTHYROXINE
     Dosage: 50 UG, DAILY
  3. ATENOLOL. [Concomitant]
     Active Substance: ATENOLOL
     Dosage: 25 MG, DAILY
  4. CARDIOREX [Suspect]
     Active Substance: AMLODIPINE BESYLATE
     Indication: SUPRAVENTRICULAR TACHYARRHYTHMIA
     Dosage: 5 MG, UNK
     Route: 048
     Dates: start: 20080401

REACTIONS (2)
  - Blister [Not Recovered/Not Resolved]
  - Pemphigoid [Unknown]

NARRATIVE: CASE EVENT DATE: 20140401
